FAERS Safety Report 10405904 (Version 2)
Quarter: 2015Q2

REPORT INFORMATION
  Report Type: Report from Study
  Country: TR (occurrence: TR)
  Receive Date: 20140825
  Receipt Date: 20150421
  Transmission Date: 20150821
  Serious: Yes (Hospitalization)
  Sender: FDA-Public Use
  Company Number: TR-NOVOPROD-419463

PATIENT
  Sex: Male
  Weight: 2.5 kg

DRUGS (4)
  1. HUMULIN N [Concomitant]
     Active Substance: INSULIN HUMAN
     Indication: TYPE 2 DIABETES MELLITUS
     Dosage: 12 U, QD
     Route: 063
  2. MAGNORM [Concomitant]
     Indication: THROMBOSIS PROPHYLAXIS
     Dosage: 1X1
     Route: 064
     Dates: start: 201402, end: 20140515
  3. NOVORAPID [Suspect]
     Active Substance: INSULIN ASPART
     Indication: TYPE 2 DIABETES MELLITUS
     Dosage: 12 U, QD
     Route: 064
     Dates: start: 20140317
  4. NOVORAPID [Suspect]
     Active Substance: INSULIN ASPART
     Dosage: 12 U, QD
     Route: 063

REACTIONS (6)
  - Neonatal tachypnoea [Recovered/Resolved]
  - Pleural effusion [Recovered/Resolved]
  - Exposure during breast feeding [Unknown]
  - Foetal exposure during pregnancy [Recovered/Resolved]
  - Premature baby [Unknown]
  - Jaundice neonatal [Recovered/Resolved]

NARRATIVE: CASE EVENT DATE: 20140317
